FAERS Safety Report 9695658 (Version 1)
Quarter: 2013Q4

REPORT INFORMATION
  Report Type: Spontaneous
  Country: US (occurrence: None)
  Receive Date: 20131118
  Receipt Date: 20131118
  Transmission Date: 20140711
  Serious: No
  Sender: FDA-Public Use
  Company Number: None

PATIENT
  Age: 37 Year
  Sex: Female
  Weight: 60.78 kg

DRUGS (2)
  1. CYMBALTA [Suspect]
     Indication: DEPRESSION
     Route: 048
     Dates: start: 20130910, end: 20131115
  2. CYMBALTA [Suspect]
     Indication: PAIN
     Route: 048
     Dates: start: 20130910, end: 20131115

REACTIONS (8)
  - Headache [None]
  - Dizziness [None]
  - Nausea [None]
  - Eye pain [None]
  - Headache [None]
  - Disorientation [None]
  - Agitation [None]
  - Anxiety [None]
